FAERS Safety Report 24058110 (Version 4)
Quarter: 2025Q1

REPORT INFORMATION
  Report Type: Spontaneous
  Country: US (occurrence: US)
  Receive Date: 20240707
  Receipt Date: 20250328
  Transmission Date: 20250409
  Serious: No
  Sender: AMGEN
  Company Number: US-AMGEN-USASP2024132148

PATIENT
  Age: 69 Year
  Sex: Female

DRUGS (1)
  1. TEPEZZA [Suspect]
     Active Substance: TEPROTUMUMAB-TRBW
     Indication: Endocrine ophthalmopathy
     Dosage: 1 DOSAGE FORM, Q3WK, (1XQ3WK FOR 8 INFUSIONS)
     Route: 042
     Dates: start: 20240627

REACTIONS (10)
  - Eructation [Unknown]
  - Epistaxis [Unknown]
  - Abdominal discomfort [Unknown]
  - Dizziness [Unknown]
  - Ear pain [Unknown]
  - Fatigue [Unknown]
  - Headache [Unknown]
  - Diarrhoea [Unknown]
  - Blood glucose increased [Unknown]
  - Eye pain [Unknown]
